FAERS Safety Report 24756055 (Version 3)
Quarter: 2025Q1

REPORT INFORMATION
  Report Type: Spontaneous
  Country: US (occurrence: US)
  Receive Date: 20241219
  Receipt Date: 20250117
  Transmission Date: 20250409
  Serious: No
  Sender: AMGEN
  Company Number: US-AMGEN-USASP2024247455

PATIENT
  Age: 68 Year
  Sex: Female

DRUGS (1)
  1. PROLIA [Suspect]
     Active Substance: DENOSUMAB
     Indication: Product used for unknown indication
     Route: 065

REACTIONS (7)
  - Decreased immune responsiveness [Unknown]
  - COVID-19 [Unknown]
  - Chemical burn [Unknown]
  - Sensitive skin [Unknown]
  - Wound haemorrhage [Unknown]
  - Inflammation [Unknown]
  - Impaired healing [Unknown]

NARRATIVE: CASE EVENT DATE: 20241201
